FAERS Safety Report 10158167 (Version 1)
Quarter: 2014Q2

REPORT INFORMATION
  Report Type: Report from Study
  Country: US (occurrence: US)
  Receive Date: 20140507
  Receipt Date: 20140507
  Transmission Date: 20141212
  Serious: No
  Sender: FDA-Public Use
  Company Number: US-PAR PHARMACEUTICAL, INC-2014SCPR009049

PATIENT
  Sex: 0

DRUGS (2)
  1. COLCHICINE [Suspect]
     Indication: PRODUCT USED FOR UNKNOWN INDICATION
     Dosage: 0.6 MG, SINGLE
     Route: 048
     Dates: start: 20111101
  2. COLCRYS [Suspect]
     Indication: PRODUCT USED FOR UNKNOWN INDICATION
     Dosage: 0.6 MG, SINGLE
     Route: 048
     Dates: start: 20111025

REACTIONS (3)
  - Syncope [Recovered/Resolved]
  - White blood cell count increased [Recovered/Resolved]
  - Somnolence [Recovered/Resolved]
